FAERS Safety Report 25368534 (Version 1)
Quarter: 2025Q2

REPORT INFORMATION
  Report Type: Spontaneous
  Country: US (occurrence: None)
  Receive Date: 20250528
  Receipt Date: 20250528
  Transmission Date: 20250716
  Serious: Yes (Disabling)
  Sender: FDA-CTU
  Company Number: None

PATIENT
  Age: 33 Year
  Sex: Female
  Weight: 94.5 kg

DRUGS (4)
  1. UZEDY [Suspect]
     Active Substance: RISPERIDONE
     Dates: start: 20210314, end: 20210314
  2. GABAPENTIN [Concomitant]
     Active Substance: GABAPENTIN
  3. TRAZODONE [Concomitant]
     Active Substance: TRAZODONE HYDROCHLORIDE
  4. Women^s multi vitamin [Concomitant]

REACTIONS (3)
  - Loss of personal independence in daily activities [None]
  - Muscle spasms [None]
  - Loss of libido [None]

NARRATIVE: CASE EVENT DATE: 20250314
